FAERS Safety Report 16994297 (Version 2)
Quarter: 2020Q2

REPORT INFORMATION
  Report Type: Report from Study
  Country: CN (occurrence: CN)
  Receive Date: 20191105
  Receipt Date: 20200625
  Transmission Date: 20200713
  Serious: Yes (Other)
  Sender: FDA-Public Use
  Company Number: NVSC2019CN022902

PATIENT
  Age: 35 Year
  Sex: Female

DRUGS (2)
  1. ZYKADIA [Suspect]
     Active Substance: CERITINIB
     Indication: NON-SMALL CELL LUNG CANCER
     Dosage: 450 MG, QD
     Route: 048
     Dates: start: 20190109, end: 20200610
  2. ZYKADIA [Suspect]
     Active Substance: CERITINIB
     Dosage: 450 MG, QD
     Route: 048
     Dates: start: 20190109, end: 20200610

REACTIONS (9)
  - Bone disorder [Unknown]
  - Localised oedema [Not Recovered/Not Resolved]
  - Renal disorder [Unknown]
  - Non-small cell lung cancer [Not Recovered/Not Resolved]
  - Pneumonia [Unknown]
  - Pulmonary mass [Unknown]
  - Pain in extremity [Not Recovered/Not Resolved]
  - Malignant neoplasm progression [Not Recovered/Not Resolved]
  - Pneumonitis [Unknown]

NARRATIVE: CASE EVENT DATE: 20191009
